FAERS Safety Report 6271440-3 (Version None)
Quarter: 2009Q3

REPORT INFORMATION
  Report Type: 
  Country: None (occurrence: None)
  Receive Date: 20090715
  Receipt Date: 20090715
  Transmission Date: 20100115
  Serious: Yes (Other)
  Sender: FDA-Public Use
  Company Number: None

PATIENT
  Sex: Female

DRUGS (1)
  1. PRENATE DHA (SCIELE PHARM) [Suspect]
     Indication: PREGNANCY
     Dosage: 1 SOFTGEL, DAILY
     Dates: start: 20090225, end: 20090325

REACTIONS (2)
  - ABORTION SPONTANEOUS [None]
  - EXPIRED DRUG ADMINISTERED [None]
